FAERS Safety Report 17591595 (Version 2)
Quarter: 2020Q2

REPORT INFORMATION
  Report Type: Spontaneous
  Country: IL (occurrence: IL)
  Receive Date: 20200327
  Receipt Date: 20200604
  Transmission Date: 20200713
  Serious: Yes (Death, Hospitalization, Other)
  Sender: FDA-Public Use
  Company Number: IL-ASTRAZENECA-2020SE41745

PATIENT
  Age: 29460 Day
  Sex: Male
  Weight: 80 kg

DRUGS (6)
  1. IMFINZI [Suspect]
     Active Substance: DURVALUMAB
     Indication: NON-SMALL CELL LUNG CANCER STAGE III
     Route: 042
     Dates: start: 201911
  2. DEPALEPT EC [Concomitant]
  3. CARTIA EC [Concomitant]
  4. CO-DIOVAN [Concomitant]
     Active Substance: HYDROCHLOROTHIAZIDE\VALSARTAN
  5. DORZOLAMIDE [Concomitant]
     Active Substance: DORZOLAMIDE
  6. STATOR [Concomitant]
     Dosage: 5 MG

REACTIONS (2)
  - Septic shock [Fatal]
  - Aplastic anaemia [Fatal]

NARRATIVE: CASE EVENT DATE: 20200327
